FAERS Safety Report 18575550 (Version 1)
Quarter: 2020Q4

REPORT INFORMATION
  Report Type: Spontaneous
  Country: CN (occurrence: CN)
  Receive Date: 20201203
  Receipt Date: 20201203
  Transmission Date: 20210114
  Serious: Yes (Hospitalization)
  Sender: FDA-Public Use
  Company Number: CN-BAXTER-2020BAX024438

PATIENT
  Age: 37 Year
  Sex: Female
  Weight: 58 kg

DRUGS (22)
  1. ENDOXAN [Suspect]
     Active Substance: CYCLOPHOSPHAMIDE
     Dosage: DOSE RE-INTRODUCED; ENDOXAN + 0.9% NS
     Route: 041
     Dates: start: 202011
  2. 0.9% SODIUM CHLORIDE INJECTION [Suspect]
     Active Substance: SODIUM CHLORIDE
     Dosage: 3RD COURSE OF TREATMENT; ENDOXAN 0.5G + 0.9% NS 100ML
     Route: 041
     Dates: start: 20201104, end: 20201104
  3. 0.9% SODIUM CHLORIDE INJECTION [Suspect]
     Active Substance: SODIUM CHLORIDE
     Dosage: 3RD COURSE OF TREATMENT; BORTEZOMIB 2MG + 0.9% NS 1ML
     Route: 041
     Dates: start: 20201104, end: 20201104
  4. 0.9% SODIUM CHLORIDE INJECTION [Suspect]
     Active Substance: SODIUM CHLORIDE
     Dosage: 3RD COURSE OF TREATMENT; BORTEZOMIB 2MG + 0.9% NS 1ML
     Route: 041
     Dates: start: 20201107, end: 20201107
  5. 0.9% SODIUM CHLORIDE INJECTION [Suspect]
     Active Substance: SODIUM CHLORIDE
     Dosage: 3RD COURSE OF TREATMENT; ENDOXAN 0.5G + 0.9% NS 100ML
     Route: 041
     Dates: start: 20201118, end: 20201118
  6. 0.9% SODIUM CHLORIDE INJECTION [Suspect]
     Active Substance: SODIUM CHLORIDE
     Dosage: DOSE RE-INTRODUCED; ENDOXAN + 0.9% NS
     Route: 041
     Dates: start: 202011
  7. 0.9% SODIUM CHLORIDE INJECTION [Suspect]
     Active Substance: SODIUM CHLORIDE
     Dosage: 3RD COURSE OF TREATMENT; ENDOXAN 0.5G + 0.9% NS 100ML
     Route: 041
     Dates: start: 20201111, end: 20201111
  8. BORTEZOMIB. [Suspect]
     Active Substance: BORTEZOMIB
     Dosage: 3RD COURSE OF TREATMENT; BORTEZOMIB 2MG + 0.9% NS 1ML
     Route: 041
     Dates: start: 20201104, end: 20201104
  9. BORTEZOMIB. [Suspect]
     Active Substance: BORTEZOMIB
     Indication: PLASMA CELL MYELOMA RECURRENT
     Dosage: 1ST AND 2ND COURSE OF TREATMENT; BORTEZOMIB + 0.9% NS
     Route: 041
  10. BORTEZOMIB. [Suspect]
     Active Substance: BORTEZOMIB
     Dosage: 3RD COURSE OF TREATMENT; BORTEZOMIB 2MG + 0.9% NS 1ML
     Route: 041
     Dates: start: 20201107, end: 20201107
  11. BORTEZOMIB. [Suspect]
     Active Substance: BORTEZOMIB
     Dosage: 3RD COURSE OF TREATMENT; BORTEZOMIB 2MG + 0.9% NS 1ML
     Route: 041
     Dates: start: 20201114, end: 20201114
  12. BORTEZOMIB. [Suspect]
     Active Substance: BORTEZOMIB
     Dosage: DOSE RE-INTRODUCED; BORTEZOMIB + 0.9% NS
     Route: 041
     Dates: start: 202011
  13. ENDOXAN [Suspect]
     Active Substance: CYCLOPHOSPHAMIDE
     Dosage: 3RD TREATMENT COURSE; ENDOXAN 0.5G + 0.9% NS 100ML
     Route: 041
     Dates: start: 20201104, end: 20201104
  14. ENDOXAN [Suspect]
     Active Substance: CYCLOPHOSPHAMIDE
     Dosage: 3RD TREATMENT COURSE; ENDOXAN 0.5G + 0.9% NS 100ML
     Route: 041
     Dates: start: 20201111, end: 20201111
  15. ENDOXAN [Suspect]
     Active Substance: CYCLOPHOSPHAMIDE
     Dosage: 3RD TREATMENT COURSE; ENDOXAN 0.5G + 0.9% NS 100ML
     Route: 041
     Dates: start: 20201118, end: 20201118
  16. 0.9% SODIUM CHLORIDE INJECTION [Suspect]
     Active Substance: SODIUM CHLORIDE
     Dosage: 1ST AND 2ND COURSE OF TREATMENT; BORTEZOMIB + 0.9% NS
     Route: 041
  17. 0.9% SODIUM CHLORIDE INJECTION [Suspect]
     Active Substance: SODIUM CHLORIDE
     Dosage: 3RD COURSE OF TREATMENT; BORTEZOMIB 2MG + 0.9% NS 1ML
     Route: 041
     Dates: start: 20201111, end: 20201111
  18. ENDOXAN [Suspect]
     Active Substance: CYCLOPHOSPHAMIDE
     Indication: PLASMA CELL MYELOMA RECURRENT
     Dosage: 1ST AND 2ND TREATMENT COURSE; ENDOXAN + 0.9% NS
     Route: 041
  19. 0.9% SODIUM CHLORIDE INJECTION [Suspect]
     Active Substance: SODIUM CHLORIDE
     Dosage: DOSE RE-INTRODUCED; BORTEZOMIB + 0.9% NS
     Route: 041
     Dates: start: 202011
  20. 0.9% SODIUM CHLORIDE INJECTION [Suspect]
     Active Substance: SODIUM CHLORIDE
     Indication: MEDICATION DILUTION
     Dosage: 1ST AND 2ND COURSE OF TREATMENT ; ENDOXAN + 0.9% NS
     Route: 041
  21. 0.9% SODIUM CHLORIDE INJECTION [Suspect]
     Active Substance: SODIUM CHLORIDE
     Dosage: 3RD COURSE OF TREATMENT; BORTEZOMIB 2MG + 0.9% NS 1ML
     Route: 041
     Dates: start: 20201114, end: 20201114
  22. BORTEZOMIB. [Suspect]
     Active Substance: BORTEZOMIB
     Dosage: 3RD COURSE OF TREATMENT; BORTEZOMIB 2MG + 0.9% NS 1ML
     Route: 041
     Dates: start: 20201111, end: 20201111

REACTIONS (1)
  - Myelosuppression [Recovering/Resolving]

NARRATIVE: CASE EVENT DATE: 20201117
